FAERS Safety Report 7895449-9 (Version None)
Quarter: 2011Q4

REPORT INFORMATION
  Report Type: 
  Country: None (occurrence: None)
  Receive Date: 20111106
  Receipt Date: 20110826
  Transmission Date: 20120403
  Serious: No
  Sender: FDA-Public Use
  Company Number: US-AMGEN-USASP2011043819

PATIENT
  Age: 57 Year
  Sex: Female
  Weight: 70.295 kg

DRUGS (12)
  1. LEUCOVORIN CALCIUM [Concomitant]
  2. ALBUTEROL [Concomitant]
  3. ATENOLOL [Concomitant]
  4. FOLIC ACID [Concomitant]
  5. COAL TAR                           /05730401/ [Concomitant]
  6. HYDROCHLOROTHIAZIDE [Concomitant]
  7. PROTONIX [Concomitant]
  8. METHOTREXATE [Concomitant]
  9. VITAMIN D [Concomitant]
  10. PREDNISONE [Concomitant]
  11. ENBREL [Suspect]
     Indication: PRODUCT USED FOR UNKNOWN INDICATION
     Dosage: 25 MG, 2 TIMES/WK
  12. SYNTHROID [Concomitant]

REACTIONS (2)
  - GALLBLADDER DISORDER [None]
  - BRONCHITIS [None]
